FAERS Safety Report 9208046 (Version 2)
Quarter: 2013Q2

REPORT INFORMATION
  Report Type: Spontaneous
  Country: US (occurrence: US)
  Receive Date: 20130403
  Receipt Date: 20130404
  Transmission Date: 20140414
  Serious: No
  Sender: FDA-Public Use
  Company Number: US-009507513-1304USA001586

PATIENT
  Age: 77 Year
  Sex: Female
  Weight: 77.98 kg

DRUGS (5)
  1. MIRALAX [Suspect]
     Indication: IRRITABLE BOWEL SYNDROME
     Dosage: 1 DF, ONCE
     Route: 048
     Dates: start: 20130207
  2. MIRALAX [Suspect]
     Indication: DIVERTICULUM
     Dosage: 17 G, PRN
     Dates: start: 2010
  3. TOPROL XL TABLETS [Concomitant]
     Indication: HYPERTENSION
     Dosage: UNK, UNKNOWN
  4. NEXIUM [Concomitant]
     Indication: GASTROOESOPHAGEAL REFLUX DISEASE
     Dosage: UNK, UNKNOWN
  5. RECLAST [Concomitant]
     Indication: OSTEOPOROSIS
     Dosage: UNK, UNKNOWN

REACTIONS (1)
  - Expired drug administered [Not Recovered/Not Resolved]
